FAERS Safety Report 14337079 (Version 1)
Quarter: 2017Q4

REPORT INFORMATION
  Report Type: Spontaneous
  Country: US (occurrence: US)
  Receive Date: 20171228
  Receipt Date: 20171228
  Transmission Date: 20180321
  Serious: Yes (Disabling, Other)
  Sender: FDA-Public Use
  Company Number: None

PATIENT
  Age: 25 Year
  Sex: Male
  Weight: 72 kg

DRUGS (11)
  1. CARAFATE [Concomitant]
     Active Substance: SUCRALFATE
  2. NOVOLOG [Concomitant]
     Active Substance: INSULIN ASPART
  3. ACETAMINOPHEN. [Concomitant]
     Active Substance: ACETAMINOPHEN
  4. COGENTIN [Concomitant]
     Active Substance: BENZTROPINE MESYLATE
  5. ANTIDEPRESSANT [Concomitant]
     Active Substance: UNSPECIFIED INGREDIENT
  6. ZANTAC [Concomitant]
     Active Substance: RANITIDINE HYDROCHLORIDE
  7. RISPERIDONE. [Concomitant]
     Active Substance: RISPERIDONE
  8. LANTUS [Concomitant]
     Active Substance: INSULIN GLARGINE
  9. LATUDA [Suspect]
     Active Substance: LURASIDONE HYDROCHLORIDE
     Indication: SCHIZOAFFECTIVE DISORDER
     Route: 048
     Dates: start: 20171006, end: 20171208
  10. INSULIN [Concomitant]
     Active Substance: INSULIN NOS
  11. MVI [Concomitant]
     Active Substance: VITAMINS

REACTIONS (13)
  - Fatigue [None]
  - Hypersomnia [None]
  - Glycosylated haemoglobin increased [None]
  - Sluggishness [None]
  - Nausea [None]
  - Vomiting [None]
  - Depression [None]
  - Cachexia [None]
  - Gastrooesophageal reflux disease [None]
  - Memory impairment [None]
  - Weight decreased [None]
  - Treatment noncompliance [None]
  - Abdominal discomfort [None]

NARRATIVE: CASE EVENT DATE: 20171013
